FAERS Safety Report 25199949 (Version 1)
Quarter: 2025Q2

REPORT INFORMATION
  Report Type: Spontaneous
  Country: US (occurrence: US)
  Receive Date: 20250415
  Receipt Date: 20250415
  Transmission Date: 20250716
  Serious: No
  Sender: SANOFI AVENTIS
  Company Number: US-SA-2025SA106242

PATIENT
  Age: 74 Year
  Sex: Female

DRUGS (5)
  1. KEVZARA [Suspect]
     Active Substance: SARILUMAB
     Indication: Psoriasis
     Dosage: 200 MG, QOW
     Route: 058
     Dates: start: 20250201
  2. FISH OIL [Concomitant]
     Active Substance: FISH OIL
  3. VITAMINS NOS [Concomitant]
     Active Substance: VITAMINS
  4. SYNTHROID [Concomitant]
     Active Substance: LEVOTHYROXINE SODIUM
  5. METHOTREXATE [Concomitant]
     Active Substance: METHOTREXATE

REACTIONS (2)
  - Connective tissue disorder [Unknown]
  - Product use in unapproved indication [Unknown]

NARRATIVE: CASE EVENT DATE: 20250201
